FAERS Safety Report 21403092 (Version 1)
Quarter: 2022Q3

REPORT INFORMATION
  Report Type: Spontaneous
  Country: US (occurrence: None)
  Receive Date: 20220930
  Receipt Date: 20220930
  Transmission Date: 20221027
  Serious: Yes (Other)
  Sender: FDA-Public Use
  Company Number: None

PATIENT
  Age: 61 Year
  Sex: Female
  Weight: 68.9 kg

DRUGS (2)
  1. VIVITROL [Suspect]
     Active Substance: NALTREXONE
     Indication: Alcohol use disorder
     Dosage: FREQUENCY : MONTHLY;?
     Route: 030
     Dates: start: 20220923
  2. VIVITROL [Concomitant]
     Active Substance: NALTREXONE

REACTIONS (3)
  - Injection site erythema [None]
  - Injection site pain [None]
  - Injection site induration [None]

NARRATIVE: CASE EVENT DATE: 20220930
